FAERS Safety Report 21706718 (Version 1)
Quarter: 2022Q4

REPORT INFORMATION
  Report Type: Spontaneous
  Country: US (occurrence: US)
  Receive Date: 20221209
  Receipt Date: 20221209
  Transmission Date: 20230113
  Serious: No
  Sender: FDA-Public Use
  Company Number: US-PFIZER INC-202201358497

PATIENT
  Age: 70 Year
  Sex: Male
  Weight: 74.84 kg

DRUGS (10)
  1. PAXLOVID [Suspect]
     Active Substance: NIRMATRELVIR\RITONAVIR
     Indication: COVID-19 treatment
     Dosage: UNK
     Dates: start: 20221202
  2. ASPIRIN [Concomitant]
     Active Substance: ASPIRIN
     Dosage: 81 MG, DAILY
  3. METOPROLOL [Concomitant]
     Active Substance: METOPROLOL
     Dosage: UNK (HALF A TABLET ONCE A DAY)
  4. ATORVASTATIN [Concomitant]
     Active Substance: ATORVASTATIN
     Dosage: 20 MG, 1X/DAY
  5. MESALAMINE [Concomitant]
     Active Substance: MESALAMINE
     Dosage: 800 MG, 1X/DAY
  6. CALCIUM [Concomitant]
     Active Substance: CALCIUM
     Dosage: 500 MG
  7. VITAMIN D3 [Concomitant]
     Active Substance: CHOLECALCIFEROL
     Dosage: 1 DF, 2X/DAY (ONE TABLET TWICE A DAY)
  8. PROBIOTICS NOS [Concomitant]
     Active Substance: PROBIOTICS NOS
     Dosage: 1 DF, 2X/DAY (ONE TABLET TWICE A DAY)
  9. IRON [Concomitant]
     Active Substance: IRON
     Dosage: 1 DF, 2X/DAY (1 TABLET 2 TIMES A DAY)
  10. TADALAFIL [Concomitant]
     Active Substance: TADALAFIL
     Dosage: UNK

REACTIONS (1)
  - Abdominal pain [Unknown]

NARRATIVE: CASE EVENT DATE: 20221205
